FAERS Safety Report 6382984-8 (Version None)
Quarter: 2009Q3

REPORT INFORMATION
  Report Type: 
  Country: None (occurrence: None)
  Receive Date: 20090930
  Receipt Date: 20090922
  Transmission Date: 20100115
  Serious: Yes (Death, Hospitalization)
  Sender: FDA-Public Use
  Company Number: US-JNJCH-2009025524

PATIENT
  Age: 49 Year
  Sex: Male

DRUGS (2)
  1. ASPIRIN [Suspect]
     Indication: AORTIC VALVE REPLACEMENT
     Dosage: TEXT:81 MG DAILY
     Route: 065
  2. WARFARIN [Suspect]
     Indication: AORTIC VALVE REPLACEMENT
     Dosage: TEXT:5 MG DAILY
     Route: 065

REACTIONS (9)
  - ACUTE RESPIRATORY DISTRESS SYNDROME [None]
  - AORTIC VALVE INCOMPETENCE [None]
  - ARTERIAL STENOSIS [None]
  - DISSEMINATED INTRAVASCULAR COAGULATION [None]
  - GASTROINTESTINAL HAEMORRHAGE [None]
  - HEPATIC FAILURE [None]
  - PERIPHERAL VASCULAR DISORDER [None]
  - PNEUMONIA ASPIRATION [None]
  - RENAL FAILURE [None]
